FAERS Safety Report 6127623-6 (Version None)
Quarter: 2009Q1

REPORT INFORMATION
  Report Type: 
  Country: None (occurrence: None)
  Receive Date: 20090323
  Receipt Date: 20090310
  Transmission Date: 20090719
  Serious: Yes (Hospitalization)
  Sender: FDA-Public Use
  Company Number: BR-ROCHE-620924

PATIENT
  Age: 33 Year

DRUGS (3)
  1. FUZEON [Suspect]
     Indication: ANTIRETROVIRAL THERAPY
     Route: 042
  2. RALTEGRAVIR [Concomitant]
     Indication: ANTIRETROVIRAL THERAPY
  3. DARUNAVIR [Concomitant]
     Indication: ANTIRETROVIRAL THERAPY

REACTIONS (1)
  - TOXOPLASMOSIS [None]
